FAERS Safety Report 9651271 (Version 1)
Quarter: 2013Q4

REPORT INFORMATION
  Report Type: Spontaneous
  Country: US (occurrence: US)
  Receive Date: 20131029
  Receipt Date: 20131029
  Transmission Date: 20140711
  Serious: No
  Sender: FDA-Public Use
  Company Number: US-BIOGENIDEC-2013BI071176

PATIENT
  Age: 31 Year
  Sex: Male

DRUGS (10)
  1. TECFIDERA [Suspect]
     Indication: MULTIPLE SCLEROSIS
     Route: 048
     Dates: start: 20130710, end: 20130716
  2. TECFIDERA [Suspect]
     Indication: MULTIPLE SCLEROSIS
     Route: 048
     Dates: start: 20130717
  3. PRILOSEC [Concomitant]
  4. RITALIN [Concomitant]
  5. ETODOLAC [Concomitant]
  6. FLAX SEED OIL [Concomitant]
  7. FISH OIL [Concomitant]
  8. VITAMIN B12 [Concomitant]
  9. GLUCOSAMINE [Concomitant]
  10. COQ-10 [Concomitant]

REACTIONS (1)
  - Flushing [Not Recovered/Not Resolved]
